FAERS Safety Report 5280500-5 (Version None)
Quarter: 2007Q1

REPORT INFORMATION
  Report Type: 
  Country: None (occurrence: None)
  Receive Date: 20061215
  Receipt Date: 20060922
  Transmission Date: 20070707
  Serious: Yes (Other)
  Sender: FDA-Public Use
  Company Number: HQWYE090325SEP06

PATIENT
  Age: 73 Year
  Sex: Male
  Weight: 53.57 kg

DRUGS (12)
  1. EFFEXOR XR [Suspect]
     Indication: DEPRESSION
     Dosage: 75 MG 1X PER 1 DAY, ORAL
     Route: 048
     Dates: start: 20060919, end: 20060920
  2. EFFEXOR XR [Suspect]
     Indication: PAIN
     Dosage: 75 MG 1X PER 1 DAY, ORAL
     Route: 048
     Dates: start: 20060919, end: 20060920
  3. PLAVIX [Concomitant]
  4. ASPIRIN [Concomitant]
  5. LOTENSIN [Concomitant]
  6. NORVASC [Concomitant]
  7. PREDNISONE TAB [Concomitant]
  8. PROGRAF [Concomitant]
  9. CELLCEPT [Concomitant]
  10. COZAAR [Concomitant]
  11. COREG [Concomitant]
  12. IMDUR [Concomitant]

REACTIONS (6)
  - BLOOD PRESSURE INCREASED [None]
  - CONDITION AGGRAVATED [None]
  - HEADACHE [None]
  - LOSS OF CONSCIOUSNESS [None]
  - NAUSEA [None]
  - ORTHOSTATIC HYPOTENSION [None]
